FAERS Safety Report 9187770 (Version 12)
Quarter: 2014Q1

REPORT INFORMATION
  Report Type: Report from Study
  Country: US (occurrence: US)
  Receive Date: 20130325
  Receipt Date: 20140311
  Transmission Date: 20141002
  Serious: Yes (Other)
  Sender: FDA-Public Use
  Company Number: US-ROCHE-1193385

PATIENT
  Sex: Female
  Weight: 110.32 kg

DRUGS (52)
  1. OMALIZUMAB [Suspect]
     Indication: ASTHMA
     Dosage: MOST RECENT DOSE ON 04/FEB/2014
     Route: 058
     Dates: start: 20110131
  2. OMALIZUMAB [Suspect]
     Route: 058
     Dates: start: 20121029
  3. OMALIZUMAB [Suspect]
     Route: 058
     Dates: start: 20121112
  4. OMALIZUMAB [Suspect]
     Route: 058
     Dates: start: 20121124
  5. OMALIZUMAB [Suspect]
     Route: 058
     Dates: start: 20121210
  6. OMALIZUMAB [Suspect]
     Route: 058
     Dates: start: 20121224
  7. OMALIZUMAB [Suspect]
     Route: 058
     Dates: start: 20130107
  8. OMALIZUMAB [Suspect]
     Route: 058
     Dates: start: 20130121
  9. OMALIZUMAB [Suspect]
     Route: 058
     Dates: start: 20130204
  10. OMALIZUMAB [Suspect]
     Route: 058
     Dates: start: 20130218
  11. OMALIZUMAB [Suspect]
     Route: 058
     Dates: start: 20121015
  12. OMALIZUMAB [Suspect]
     Route: 058
     Dates: start: 20121022
  13. OMALIZUMAB [Suspect]
     Route: 058
     Dates: start: 20121105
  14. OMALIZUMAB [Suspect]
     Route: 058
     Dates: start: 20121119
  15. OMALIZUMAB [Suspect]
     Route: 058
     Dates: start: 20121203
  16. OMALIZUMAB [Suspect]
     Route: 058
     Dates: start: 20121217
  17. OMALIZUMAB [Suspect]
     Route: 058
     Dates: start: 20130104
  18. OMALIZUMAB [Suspect]
     Route: 058
     Dates: start: 20130304
  19. OMALIZUMAB [Suspect]
     Route: 058
     Dates: start: 20130401
  20. OMALIZUMAB [Suspect]
     Route: 058
     Dates: start: 20130415
  21. OMALIZUMAB [Suspect]
     Route: 058
     Dates: start: 20130429
  22. OMALIZUMAB [Suspect]
     Route: 058
     Dates: start: 20130513
  23. OMALIZUMAB [Suspect]
     Route: 058
     Dates: start: 20130603
  24. OMALIZUMAB [Suspect]
     Route: 058
     Dates: start: 20130617
  25. OMALIZUMAB [Suspect]
     Route: 058
     Dates: start: 20130701
  26. OMALIZUMAB [Suspect]
     Route: 058
     Dates: start: 20130715
  27. OMALIZUMAB [Suspect]
     Route: 058
     Dates: start: 20130729
  28. OMALIZUMAB [Suspect]
     Route: 058
     Dates: start: 20130812
  29. OMALIZUMAB [Suspect]
     Route: 058
     Dates: start: 20130826
  30. OMALIZUMAB [Suspect]
     Route: 065
     Dates: start: 20130909
  31. OMALIZUMAB [Suspect]
     Route: 065
     Dates: start: 20130923
  32. OMALIZUMAB [Suspect]
     Route: 065
     Dates: start: 20131007
  33. OMALIZUMAB [Suspect]
     Route: 065
     Dates: start: 20131021
  34. OMALIZUMAB [Suspect]
     Route: 065
     Dates: start: 20131104
  35. OMALIZUMAB [Suspect]
     Route: 065
     Dates: start: 20131118
  36. OMALIZUMAB [Suspect]
     Route: 065
     Dates: start: 20131202
  37. OMALIZUMAB [Suspect]
     Route: 065
     Dates: start: 20131216
  38. OMALIZUMAB [Suspect]
     Route: 065
     Dates: start: 20131230
  39. OMALIZUMAB [Suspect]
     Route: 065
     Dates: start: 20140113
  40. OMALIZUMAB [Suspect]
     Route: 065
     Dates: start: 20140203
  41. ASTEPRO [Concomitant]
     Indication: ASTHMA
  42. NASONEX [Concomitant]
     Indication: HYPERSENSITIVITY
  43. ETODOLAC [Concomitant]
     Indication: MIGRAINE
  44. PROMETHAZINE [Concomitant]
     Indication: MIGRAINE
  45. VERAPAMIL [Concomitant]
     Indication: MIGRAINE
  46. ADVAIR [Concomitant]
     Indication: ASTHMA
  47. VITAMIN B12 [Concomitant]
     Indication: MIGRAINE
  48. SINGULAIR [Concomitant]
     Indication: ASTHMA
  49. VITAMIN B2 [Concomitant]
     Indication: MIGRAINE
  50. ZYRTEC [Concomitant]
     Indication: HYPERSENSITIVITY
  51. MAGNESIUM OXIDE [Concomitant]
     Indication: MIGRAINE
  52. PULMICORT [Concomitant]
     Indication: ASTHMA

REACTIONS (4)
  - Asthma [Unknown]
  - Malaise [Unknown]
  - Upper respiratory tract infection [Unknown]
  - Exposure during pregnancy [Unknown]
